FAERS Safety Report 22611487 (Version 1)
Quarter: 2023Q2

REPORT INFORMATION
  Report Type: Spontaneous
  Country: US (occurrence: US)
  Receive Date: 20230616
  Receipt Date: 20230616
  Transmission Date: 20230722
  Serious: Yes (Hospitalization)
  Sender: FDA-Public Use
  Company Number: US-FreseniusKabi-FK202308424

PATIENT
  Age: 68 Year
  Sex: Male

DRUGS (18)
  1. MESNA [Suspect]
     Active Substance: MESNA
     Indication: Acute lymphocytic leukaemia
     Dosage: CYCLIC (REGIMEN A: 300 MG/M2, DAILY OVER 24 HOURS FOR?3 DAYS ON DAYS 1-3)
     Route: 042
  2. DEXAMETHASONE [Suspect]
     Active Substance: DEXAMETHASONE
     Indication: Acute lymphocytic leukaemia
     Dosage: CYCLIC (REGIMEN A: 20 MG, DAILY FOR 4 DAYS ON DAYS 1-4 AND DAYS 11-14 (APPROXIMATE))
     Route: 042
  3. METHOTREXATE SODIUM [Suspect]
     Active Substance: METHOTREXATE SODIUM
     Indication: Acute lymphocytic leukaemia
     Dosage: CYCLIC (REGIMEN B: 200 MG/M2, CONTINUOUS INFUSION OVER 22?HOURS ON DAY 1)
     Route: 042
  4. METHOTREXATE SODIUM [Suspect]
     Active Substance: METHOTREXATE SODIUM
     Dosage: CYCLIC (REGIMEN B: 50 MG/M2, OVER 2HRS ON DAY 1 THEN)
     Route: 042
  5. CYTARABINE [Suspect]
     Active Substance: CYTARABINE
     Indication: Acute lymphocytic leukaemia
     Dosage: CYCLIC (REGIMEN B: 0.5 G/M2, OVER 3 HOURS TWICE A DAY X 4 DOSES ON DAYS 2 AND 3
     Route: 042
  6. RITUXIMAB [Suspect]
     Active Substance: RITUXIMAB
     Indication: Acute lymphocytic leukaemia
     Dosage: CYCLIC (REGIMEN B: 375 MG/M2, ON DAY 2 AND 8 OF CYCLES 2 AND 4),
     Route: 042
  7. RITUXIMAB [Suspect]
     Active Substance: RITUXIMAB
     Dosage: CYCLIC (REGIMEN A: 375 MG/M2, ON DAY 2 AND DAY 8 OF CYCLES 1 AND 3)
     Route: 042
  8. VINCRISTINE SULFATE [Suspect]
     Active Substance: VINCRISTINE SULFATE
     Indication: Acute lymphocytic leukaemia
     Dosage: CYCLIC, REGIMEN A: 2 MG, DAY 1 AND DAY 8 ?(APPROXIMATE)
     Route: 042
  9. VINCRISTINE SULFATE [Suspect]
     Active Substance: VINCRISTINE SULFATE
     Dosage: REGIMEN M: 2 MG, MONTHLY FOR 1 YEAR)
     Route: 042
  10. INOTUZUMAB OZOGAMICIN [Suspect]
     Active Substance: INOTUZUMAB OZOGAMICIN
     Indication: Acute lymphocytic leukaemia
     Dosage: OVER 1 HOUR ON DAYS 2 AND 8 OF CYCLES 1 AND 3 (APPROXIMATE)
     Route: 042
  11. INOTUZUMAB OZOGAMICIN [Suspect]
     Active Substance: INOTUZUMAB OZOGAMICIN
     Dosage: CYCLIC (REGIMEN B: 0.3 MG/M2, ON DAYS 2 AND 8 OF CYCLES 2 AND 4 (APPROXIMATE))
     Route: 042
  12. BLINATUMOMAB [Suspect]
     Active Substance: BLINATUMOMAB
     Indication: Acute lymphocytic leukaemia
     Dosage: CYCLIC (REGIMEN C: 9 UG/DAY CONTINUOUS INFUSION DAYS 1-4 (CYCLE 5 ONLY
     Route: 042
  13. BLINATUMOMAB [Suspect]
     Active Substance: BLINATUMOMAB
     Dosage: CYCLIC (REGIMEN C: 28 UG/DAY CONTINUOUS INFUSION DAYS 4-29 (CYCLE 5 ONLY)
     Route: 042
  14. BLINATUMOMAB [Suspect]
     Active Substance: BLINATUMOMAB
     Dosage: CYCLIC (REGIMEN C: 28 UG/DAY CONTINUOUS INFUSION DAYS 1-29 (CYCLES 6, 11 AND 12)
     Route: 042
  15. MERCAPTOPURINE [Suspect]
     Active Substance: MERCAPTOPURINE
     Indication: Acute lymphocytic leukaemia
     Dosage: 2X/DAY (REGIMEN M: 50 MG, BID), ORAL
     Route: 048
  16. CYCLOPHOSPHAMIDE [Suspect]
     Active Substance: CYCLOPHOSPHAMIDE
     Indication: Acute lymphocytic leukaemia
     Dosage: CYCLIC (REGIMEN A: 150 MG/M2, OVER 3 HOURS TWICE A DAY ON DAYS 1-3
     Route: 042
  17. METHOTREXATE [Suspect]
     Active Substance: METHOTREXATE
     Indication: Acute lymphocytic leukaemia
     Dosage: WEEKLY (REGIMEN M: 10 MG/M2, WEEKLY), ORAL
     Route: 048
  18. PREDNISONE [Suspect]
     Active Substance: PREDNISONE
     Indication: Acute lymphocytic leukaemia
     Dosage: DAILY (REGIMEN M: 50 MG PO DAILY X 5 EVERY MONTH FOR 1 YEAR), ORAL
     Route: 048

REACTIONS (1)
  - Pyrexia [Recovered/Resolved]

NARRATIVE: CASE EVENT DATE: 20230418
